FAERS Safety Report 11123500 (Version 2)
Quarter: 2015Q3

REPORT INFORMATION
  Report Type: Report from Study
  Country: BR (occurrence: BR)
  Receive Date: 20150519
  Receipt Date: 20150701
  Transmission Date: 20151125
  Serious: Yes (Death, Other)
  Sender: FDA-Public Use
  Company Number: PHHY2015BR059786

PATIENT
  Sex: Female
  Weight: 44 kg

DRUGS (1)
  1. EXELON PATCH [Suspect]
     Active Substance: RIVASTIGMINE
     Indication: DELIRIUM
     Dosage: PATCH 5 (CM2)
     Route: 062

REACTIONS (4)
  - Off label use [Unknown]
  - Influenza [Fatal]
  - Pneumonia [Fatal]
  - Respiratory tract infection [Fatal]
